FAERS Safety Report 13375752 (Version 1)
Quarter: 2017Q1

REPORT INFORMATION
  Report Type: Spontaneous
  Country: GB (occurrence: GB)
  Receive Date: 20170328
  Receipt Date: 20170328
  Transmission Date: 20170429
  Serious: Yes (Congenital Anomaly)
  Sender: FDA-Public Use
  Company Number: GB-AUROBINDO-AUR-APL-2017-31250

PATIENT
  Sex: Female

DRUGS (3)
  1. LAMOTRIGINE 100MG [Suspect]
     Active Substance: LAMOTRIGINE
     Indication: EPILEPSY
     Dosage: 25 MG, ONCE A DAY
     Route: 064
  2. LAMOTRIGINE 100MG [Suspect]
     Active Substance: LAMOTRIGINE
     Dosage: 100 MG, ONCE A DAY
     Route: 064
  3. METHADONE HYDROCHLORIDE. [Concomitant]
     Active Substance: METHADONE HYDROCHLORIDE
     Indication: DRUG ABUSE
     Route: 064

REACTIONS (2)
  - Congenital diaphragmatic hernia [Recovered/Resolved]
  - Foetal exposure during pregnancy [Recovered/Resolved]
